FAERS Safety Report 9566284 (Version 1)
Quarter: 2013Q3

REPORT INFORMATION
  Report Type: Spontaneous
  Country: US (occurrence: US)
  Receive Date: 20130930
  Receipt Date: 20130930
  Transmission Date: 20140515
  Serious: No
  Sender: FDA-Public Use
  Company Number: US-PURDUE-USA-2012-0092579

PATIENT
  Sex: Male

DRUGS (2)
  1. INTERMEZZO [Suspect]
     Indication: TERMINAL INSOMNIA
     Dosage: 3.5 MG, UNK
     Route: 060
  2. MOOD STABILIZERS [Concomitant]

REACTIONS (1)
  - Drug ineffective [Unknown]
